FAERS Safety Report 19159575 (Version 1)
Quarter: 2021Q2

REPORT INFORMATION
  Report Type: Spontaneous
  Country: FR (occurrence: FR)
  Receive Date: 20210420
  Receipt Date: 20210420
  Transmission Date: 20210717
  Serious: Yes (Hospitalization)
  Sender: FDA-Public Use
  Company Number: FR-TEVA-2021-FR-1901404

PATIENT
  Age: 29 Year
  Sex: Male

DRUGS (12)
  1. PRIMPERAN [Suspect]
     Active Substance: METOCLOPRAMIDE HYDROCHLORIDE
     Indication: SUICIDE ATTEMPT
     Route: 048
     Dates: start: 20200801, end: 20200801
  2. TRAMADOL (CHLORHYDRATE DE) [Suspect]
     Active Substance: TRAMADOL HYDROCHLORIDE
     Indication: SUICIDE ATTEMPT
     Route: 048
     Dates: start: 20200801, end: 20200801
  3. OXYCODONE [Suspect]
     Active Substance: OXYCODONE
     Indication: SUICIDE ATTEMPT
     Route: 048
     Dates: start: 20200801, end: 20200801
  4. TANGANIL [Suspect]
     Active Substance: ACETYLLEUCINE, L-
     Indication: SUICIDE ATTEMPT
     Route: 048
     Dates: start: 20200801, end: 20200801
  5. ESOMEPRAZOLE. [Concomitant]
     Active Substance: ESOMEPRAZOLE MAGNESIUM
  6. KETOPROFENE [Suspect]
     Active Substance: KETOPROFEN
     Route: 048
     Dates: start: 20200801, end: 20200801
  7. PRIMPERAN [Suspect]
     Active Substance: METOCLOPRAMIDE HYDROCHLORIDE
     Route: 048
     Dates: start: 20200801, end: 20200801
  8. HYDROXYZINE (CHLORHYDRATE D) [Suspect]
     Active Substance: HYDROXYZINE HYDROCHLORIDE
     Indication: SUICIDE ATTEMPT
     Route: 048
     Dates: start: 20200801, end: 20200801
  9. HYDROXYZINE (CHLORHYDRATE D) [Suspect]
     Active Substance: HYDROXYZINE HYDROCHLORIDE
     Route: 048
     Dates: start: 20200801, end: 20200801
  10. TRAMADOL (CHLORHYDRATE DE) [Suspect]
     Active Substance: TRAMADOL HYDROCHLORIDE
     Route: 048
     Dates: start: 20200801, end: 20200801
  11. KETOPROFENE [Suspect]
     Active Substance: KETOPROFEN
     Indication: SUICIDE ATTEMPT
     Route: 048
     Dates: start: 20200801, end: 20200801
  12. TANGANIL [Suspect]
     Active Substance: ACETYLLEUCINE, L-
     Route: 048
     Dates: start: 20200801, end: 20200801

REACTIONS (3)
  - Toxicity to various agents [Recovered/Resolved]
  - Miosis [Recovered/Resolved]
  - Oxygen saturation decreased [Recovered/Resolved]

NARRATIVE: CASE EVENT DATE: 20200801
